FAERS Safety Report 5370855-5 (Version None)
Quarter: 2007Q2

REPORT INFORMATION
  Report Type: 
  Country: None (occurrence: None)
  Receive Date: 20070626
  Receipt Date: 20061115
  Transmission Date: 20071010
  Serious: No
  Sender: FDA-Public Use
  Company Number: US-BAUSCH-2006BL006189

PATIENT
  Age: 4 Year

DRUGS (1)
  1. ALBUTEROL SULFATE [Suspect]
     Indication: DRUG USE FOR UNKNOWN INDICATION
     Route: 049

REACTIONS (1)
  - BURNING SENSATION [None]
